FAERS Safety Report 15772190 (Version 1)
Quarter: 2018Q4

REPORT INFORMATION
  Report Type: Spontaneous
  Country: US (occurrence: US)
  Receive Date: 20181228
  Receipt Date: 20181228
  Transmission Date: 20190205
  Serious: Yes (Hospitalization)
  Sender: FDA-Public Use
  Company Number: US-SANIK-2018SA395165AA

PATIENT
  Sex: Male
  Weight: 92.07 kg

DRUGS (1)
  1. PLAVIX [Suspect]
     Active Substance: CLOPIDOGREL BISULFATE
     Indication: TRANSIENT ISCHAEMIC ATTACK
     Dosage: UNK UNK, UNK
     Route: 065

REACTIONS (3)
  - Aneurysm [Unknown]
  - Weight decreased [Unknown]
  - Arteriosclerosis [Unknown]
